FAERS Safety Report 5286759-2 (Version None)
Quarter: 2007Q2

REPORT INFORMATION
  Report Type: 
  Country: None (occurrence: None)
  Receive Date: 20070404
  Receipt Date: 20070330
  Transmission Date: 20071010
  Serious: Yes (Other)
  Sender: FDA-Public Use
  Company Number: 2006UW10847

PATIENT
  Age: 358 Month
  Sex: Male
  Weight: 102.3 kg

DRUGS (5)
  1. SEROQUEL [Suspect]
     Indication: SLEEP DISORDER
     Route: 048
     Dates: start: 19960101, end: 20030101
  2. RISPERDAL [Concomitant]
     Dates: start: 20030101
  3. THORAZINE [Concomitant]
     Dates: start: 19800101, end: 19950101
  4. MARAJUANA [Concomitant]
     Dosage: EVERYDAY
     Dates: start: 19900101, end: 20060101
  5. COCAINE [Concomitant]
     Dosage: 3 TIMES
     Dates: start: 20040101

REACTIONS (2)
  - CATARACT [None]
  - DIABETES MELLITUS [None]
